FAERS Safety Report 19829881 (Version 3)
Quarter: 2023Q4

REPORT INFORMATION
  Report Type: Spontaneous
  Country: US (occurrence: US)
  Receive Date: 20210915
  Receipt Date: 20231006
  Transmission Date: 20240110
  Serious: Yes (Other)
  Sender: FDA-Public Use
  Company Number: US-JNJFOC-20210913519

PATIENT
  Age: 32 Year
  Sex: Female

DRUGS (38)
  1. ELMIRON [Suspect]
     Active Substance: PENTOSAN POLYSULFATE SODIUM
     Indication: Cystitis interstitial
     Route: 048
     Dates: start: 20130904, end: 201804
  2. ELMIRON [Suspect]
     Active Substance: PENTOSAN POLYSULFATE SODIUM
     Route: 048
     Dates: start: 201808, end: 201810
  3. ELMIRON [Suspect]
     Active Substance: PENTOSAN POLYSULFATE SODIUM
     Route: 048
     Dates: start: 201901, end: 202006
  4. ELMIRON [Suspect]
     Active Substance: PENTOSAN POLYSULFATE SODIUM
     Route: 048
     Dates: end: 20210204
  5. PREMARIN [Concomitant]
     Active Substance: ESTROGENS, CONJUGATED
     Indication: Hormone replacement therapy
     Dates: start: 201401, end: 201912
  6. PREMARIN [Concomitant]
     Active Substance: ESTROGENS, CONJUGATED
     Dates: start: 202003, end: 202006
  7. ONDANSETRON [Concomitant]
     Active Substance: ONDANSETRON
     Indication: Nausea
     Dates: start: 201401, end: 201701
  8. ONDANSETRON [Concomitant]
     Active Substance: ONDANSETRON
     Dates: start: 201709, end: 202007
  9. NUCYNTA [Concomitant]
     Active Substance: TAPENTADOL HYDROCHLORIDE
     Indication: Pain management
     Dates: start: 201503, end: 201701
  10. NUCYNTA [Concomitant]
     Active Substance: TAPENTADOL HYDROCHLORIDE
     Dates: start: 201702, end: 202007
  11. HYDROMORPHONE [Concomitant]
     Active Substance: HYDROMORPHONE
     Indication: Pain management
     Dates: start: 201405, end: 201501
  12. HYDROMORPHONE [Concomitant]
     Active Substance: HYDROMORPHONE
     Dates: start: 201502, end: 201701
  13. HYDROMORPHONE [Concomitant]
     Active Substance: HYDROMORPHONE
     Dates: start: 201704, end: 202007
  14. RANOLAZINE [Concomitant]
     Active Substance: RANOLAZINE
     Indication: Pain management
     Dates: start: 201407, end: 201910
  15. PREGABALIN [Concomitant]
     Active Substance: PREGABALIN
     Indication: Pain management
     Dates: start: 201401, end: 202006
  16. DULOXETINE [Concomitant]
     Active Substance: DULOXETINE
     Indication: Anxiety
     Dates: start: 201401, end: 201701
  17. DULOXETINE [Concomitant]
     Active Substance: DULOXETINE
     Dates: start: 201709, end: 201904
  18. DULOXETINE [Concomitant]
     Active Substance: DULOXETINE
     Dates: start: 201905, end: 201907
  19. DULOXETINE [Concomitant]
     Active Substance: DULOXETINE
     Dates: start: 201910, end: 202001
  20. DULOXETINE [Concomitant]
     Active Substance: DULOXETINE
     Dates: start: 202004, end: 202007
  21. SUMATRIPTAN AND NAPROXEN SODIUM [Concomitant]
     Active Substance: NAPROXEN SODIUM\SUMATRIPTAN SUCCINATE
     Indication: Pain management
     Dates: start: 201401, end: 201809
  22. SUMATRIPTAN AND NAPROXEN SODIUM [Concomitant]
     Active Substance: NAPROXEN SODIUM\SUMATRIPTAN SUCCINATE
     Dates: start: 201906, end: 202001
  23. TRAZODONE [Concomitant]
     Active Substance: TRAZODONE HYDROCHLORIDE
     Indication: Anxiety
     Dates: start: 201507, end: 201611
  24. TRAZODONE [Concomitant]
     Active Substance: TRAZODONE HYDROCHLORIDE
     Dates: start: 202001, end: 202006
  25. TELMISARTAN [Concomitant]
     Active Substance: TELMISARTAN
     Indication: Hypertension
     Dates: start: 201507, end: 201910
  26. LYRICA [Concomitant]
     Active Substance: PREGABALIN
     Indication: Pain management
     Dates: start: 201706, end: 201906
  27. AMITIZA [Concomitant]
     Active Substance: LUBIPROSTONE
     Indication: Irritable bowel syndrome
     Dates: start: 201507, end: 201910
  28. EXALGO [Concomitant]
     Active Substance: HYDROMORPHONE HYDROCHLORIDE
     Indication: Pain management
     Dates: start: 201703, end: 201804
  29. BUTRANS [Concomitant]
     Active Substance: BUPRENORPHINE
     Indication: Pain management
  30. TEMAZEPAM [Concomitant]
     Active Substance: TEMAZEPAM
     Indication: Insomnia
     Dates: start: 201502, end: 201607
  31. ZOLPIDEM [Concomitant]
     Active Substance: ZOLPIDEM TARTRATE
     Indication: Insomnia
     Dates: start: 201506, end: 201606
  32. TRIMETHOBENZAMIDE [Concomitant]
     Active Substance: TRIMETHOBENZAMIDE
     Indication: Nausea
     Dates: start: 201507, end: 201611
  33. ASMANEX [Concomitant]
     Active Substance: MOMETASONE FUROATE
     Indication: Dyspnoea
     Dates: start: 201310, end: 201312
  34. LINZESS [Concomitant]
     Active Substance: LINACLOTIDE
     Indication: Irritable bowel syndrome
     Dates: start: 201507, end: 201611
  35. ALLEGRA [Concomitant]
     Active Substance: FEXOFENADINE HYDROCHLORIDE
     Indication: Hypersensitivity
     Dates: start: 201507, end: 201910
  36. DULCOLAX (BISACODYL) [Concomitant]
     Active Substance: BISACODYL
     Indication: Abnormal faeces
     Dates: start: 201507, end: 201611
  37. DEXILANT [Concomitant]
     Active Substance: DEXLANSOPRAZOLE
     Indication: Gastrooesophageal reflux disease
     Dates: start: 201407, end: 201611
  38. SCOPOLAMINE [Concomitant]
     Active Substance: SCOPOLAMINE
     Indication: Nausea
     Dates: start: 201407, end: 201910

REACTIONS (6)
  - Retinal dystrophy [Not Recovered/Not Resolved]
  - Retinal pigmentation [Not Recovered/Not Resolved]
  - Macular degeneration [Not Recovered/Not Resolved]
  - Maculopathy [Not Recovered/Not Resolved]
  - Optic atrophy [Not Recovered/Not Resolved]
  - Migraine [Unknown]

NARRATIVE: CASE EVENT DATE: 20131101
